FAERS Safety Report 17789066 (Version 1)
Quarter: 2020Q2

REPORT INFORMATION
  Report Type: Spontaneous
  Country: PL (occurrence: PL)
  Receive Date: 20200514
  Receipt Date: 20200514
  Transmission Date: 20200714
  Serious: Yes (Hospitalization)
  Sender: FDA-Public Use
  Company Number: PL-JUBILANT CADISTA PHARMACEUTICALS-2020JUB00168

PATIENT
  Age: 51 Year
  Sex: Female

DRUGS (9)
  1. LAMOTRIGINE. [Suspect]
     Active Substance: LAMOTRIGINE
     Dosage: 50 MG, 1X/DAY
     Route: 065
  2. QUETIAPINE. [Suspect]
     Active Substance: QUETIAPINE
     Indication: BIPOLAR DISORDER
     Dosage: 50 MG, 1X/DAY
     Route: 065
  3. QUETIAPINE. [Suspect]
     Active Substance: QUETIAPINE
     Dosage: 400 MG, 1X/DAY
     Route: 065
  4. LAMOTRIGINE. [Suspect]
     Active Substance: LAMOTRIGINE
     Dosage: 200 MG, 1X/DAY
     Route: 065
  5. ARIPIPRAZOLE. [Suspect]
     Active Substance: ARIPIPRAZOLE
     Dosage: 30 MG, 1X/DAY
     Route: 065
  6. LAMOTRIGINE. [Suspect]
     Active Substance: LAMOTRIGINE
     Dosage: 25 MG, 1X/DAY
     Route: 065
  7. ARIPIPRAZOLE. [Suspect]
     Active Substance: ARIPIPRAZOLE
     Indication: BIPOLAR DISORDER
     Dosage: 7.5 MG, 1X/DAY
     Route: 065
  8. LAMOTRIGINE. [Suspect]
     Active Substance: LAMOTRIGINE
     Indication: BIPOLAR DISORDER
     Dosage: 25 MG, 1X/DAY
     Route: 065
  9. LAMOTRIGINE. [Suspect]
     Active Substance: LAMOTRIGINE
     Dosage: 225 MG 1X/DAY
     Route: 065

REACTIONS (1)
  - Neuroleptic malignant syndrome [Recovered/Resolved]
